FAERS Safety Report 12311188 (Version 1)
Quarter: 2016Q2

REPORT INFORMATION
  Report Type: Spontaneous
  Country: US (occurrence: US)
  Receive Date: 20160427
  Receipt Date: 20160427
  Transmission Date: 20160815
  Serious: Yes (Life-Threatening, Hospitalization)
  Sender: FDA-Public Use
  Company Number: US-LPDUSPRD-20160354

PATIENT
  Age: 60 Year
  Sex: Male

DRUGS (10)
  1. CYCLOSPORINE INJECTION, USP (866-10) [Suspect]
     Active Substance: CYCLOSPORINE
     Dosage: DOSE NOT PROVIDED
     Route: 065
  2. MOFETIL [Concomitant]
     Active Substance: MYCOPHENOLATE MOFETIL
     Dosage: DOSE NOT PROVIDED
     Route: 065
  3. FUROSEMIDE INJECTION, USP (5702-25) [Concomitant]
     Active Substance: FUROSEMIDE
     Dosage: DOSE NOT PROVIDED
     Route: 065
  4. PREDNISONE. [Concomitant]
     Active Substance: PREDNISONE
     Dosage: 30 MG DAILY
     Route: 065
  5. MYCOPHENOLATE [Concomitant]
     Active Substance: MYCOPHENOLIC ACID
     Dosage: DOSE NOT PROVIDED
     Route: 065
  6. COLCHICINE. [Suspect]
     Active Substance: COLCHICINE
     Dosage: 0.6MG THREE TIMES PER DAY
     Route: 065
  7. CARVEDILOL. [Concomitant]
     Active Substance: CARVEDILOL
     Dosage: DOSE NOT PROVIDED
     Route: 065
  8. PRAVASTATIN [Suspect]
     Active Substance: PRAVASTATIN\PRAVASTATIN SODIUM
     Dosage: DOSE NOT PROVIDED
     Route: 065
  9. CALCITRIOL. [Concomitant]
     Active Substance: CALCITRIOL
     Dosage: DOSE NOT PROVIDED
     Route: 065
  10. ALLOPURINOL. [Concomitant]
     Active Substance: ALLOPURINOL
     Dosage: 100 MG DAILY
     Route: 065

REACTIONS (3)
  - Drug interaction [Unknown]
  - Multiple organ dysfunction syndrome [Unknown]
  - Acidosis [Unknown]
